FAERS Safety Report 10950076 (Version 1)
Quarter: 2015Q1

REPORT INFORMATION
  Report Type: Report from Study
  Country: US (occurrence: US)
  Receive Date: 20150324
  Receipt Date: 20150324
  Transmission Date: 20150721
  Serious: Yes (Hospitalization)
  Sender: FDA-Public Use
  Company Number: US-EXELIXIS-CABO-14004703

PATIENT
  Sex: Female

DRUGS (2)
  1. CABOZANTINIB [Suspect]
     Active Substance: CABOZANTINIB
     Dosage: 140 MG, QD
     Route: 048
     Dates: start: 201410, end: 20150114
  2. CABOZANTINIB [Suspect]
     Active Substance: CABOZANTINIB
     Indication: THYROID CANCER
     Dosage: 80 MG, QD
     Route: 048
     Dates: start: 20140716, end: 20140722

REACTIONS (9)
  - Blood calcium decreased [Unknown]
  - Oral discomfort [Unknown]
  - Fatigue [Unknown]
  - Hyperkeratosis [Unknown]
  - Electrolyte imbalance [Unknown]
  - Blood magnesium decreased [Unknown]
  - Skin discolouration [Unknown]
  - Oral pain [Unknown]
  - Feeding disorder [Unknown]
